FAERS Safety Report 7599496-6 (Version None)
Quarter: 2011Q3

REPORT INFORMATION
  Report Type: 
  Country: None (occurrence: None)
  Receive Date: 20110711
  Receipt Date: 20110610
  Transmission Date: 20111222
  Serious: No
  Sender: FDA-Public Use
  Company Number: US-BAYER-2011-050647

PATIENT
  Sex: Female

DRUGS (1)
  1. YAZ [Suspect]
     Indication: PREMENSTRUAL SYNDROME
     Dosage: UNK

REACTIONS (4)
  - HYPOAESTHESIA [None]
  - CHLOASMA [None]
  - SKIN DISCOLOURATION [None]
  - ACNE [None]
